FAERS Safety Report 7156880-2 (Version None)
Quarter: 2010Q4

REPORT INFORMATION
  Report Type: 
  Country: None (occurrence: None)
  Receive Date: 20101214
  Receipt Date: 20101201
  Transmission Date: 20110411
  Serious: Yes (Hospitalization, Other)
  Sender: FDA-Public Use
  Company Number: PHHY2010AU77800

PATIENT
  Sex: Male

DRUGS (3)
  1. CLOZARIL [Suspect]
     Indication: SCHIZOPHRENIA
     Dosage: 500 MG
     Route: 048
     Dates: start: 20100805
  2. PANADOL [Concomitant]
  3. OXAZEPAM [Concomitant]
     Dosage: 15 MG PRN
     Dates: start: 20101112

REACTIONS (2)
  - DRUG DOSE OMISSION [None]
  - HALLUCINATION, AUDITORY [None]
